FAERS Safety Report 5975688-4 (Version None)
Quarter: 2008Q4

REPORT INFORMATION
  Report Type: 
  Country: None (occurrence: None)
  Receive Date: 20081202
  Receipt Date: 20081126
  Transmission Date: 20090506
  Serious: Yes (Hospitalization)
  Sender: FDA-Public Use
  Company Number: PHBS2008IT05150

PATIENT
  Age: 57 Year
  Sex: Male

DRUGS (1)
  1. DICLOFENAC SODIUM [Suspect]

REACTIONS (9)
  - ANAPHYLACTIC REACTION [None]
  - ARTERIOGRAM CORONARY ABNORMAL [None]
  - CORONARY ARTERY STENOSIS [None]
  - ELECTROCARDIOGRAM ABNORMAL [None]
  - LARYNGEAL OEDEMA [None]
  - LOSS OF CONSCIOUSNESS [None]
  - PULSE ABSENT [None]
  - STENT PLACEMENT [None]
  - TROPONIN I INCREASED [None]
